FAERS Safety Report 20298816 (Version 1)
Quarter: 2022Q1

REPORT INFORMATION
  Report Type: Spontaneous
  Country: US (occurrence: None)
  Receive Date: 20220104
  Receipt Date: 20220104
  Transmission Date: 20220423
  Serious: Yes (Hospitalization)
  Sender: FDA-Public Use
  Company Number: None

PATIENT
  Sex: Female

DRUGS (12)
  1. METHOTREXATE [Suspect]
     Active Substance: METHOTREXATE
     Indication: Rheumatoid arthritis
  2. METHOTREXATE [Suspect]
     Active Substance: METHOTREXATE
     Indication: Rheumatoid factor negative
  3. ALPRAZOLAM TAB [Concomitant]
  4. ESTRADIOL TAB [Concomitant]
  5. FLUOXETINE CAP [Concomitant]
  6. LEUCOVOR CA [Concomitant]
  7. MAXALT TAB [Concomitant]
  8. PLAQUENIL TAB [Concomitant]
  9. PREVACID CAP [Concomitant]
  10. PSEUDOPHEDR [Concomitant]
  11. TOPAMAX TAB [Concomitant]
  12. VERAPAMIL TAB [Concomitant]

REACTIONS (2)
  - Surgery [None]
  - Therapy interrupted [None]
